FAERS Safety Report 7301039-9 (Version None)
Quarter: 2011Q1

REPORT INFORMATION
  Report Type: 
  Country: None (occurrence: None)
  Receive Date: 20110218
  Receipt Date: 20110207
  Transmission Date: 20110831
  Serious: Yes (Other)
  Sender: FDA-Public Use
  Company Number: FR-NOVOPROD-322043

PATIENT
  Age: 55 Year
  Sex: Female

DRUGS (9)
  1. COVERSYL                           /00790702/ [Concomitant]
  2. VICTOZA [Suspect]
     Dosage: 1.2 MG, QD
     Route: 058
     Dates: end: 20101001
  3. CELECTOL [Concomitant]
  4. BYETTA [Suspect]
     Dosage: UNK
  5. VICTOZA [Suspect]
     Indication: TYPE 2 DIABETES MELLITUS
     Dosage: 0.6 MG, QD
     Route: 058
     Dates: start: 20100601
  6. STABLON [Concomitant]
  7. VICTOZA [Suspect]
     Dosage: UNK
     Route: 058
     Dates: start: 20110121
  8. AMLOR [Concomitant]
  9. BUMETANIDE [Concomitant]

REACTIONS (3)
  - DERMATITIS [None]
  - PERINEAL ULCERATION [None]
  - HYPERHIDROSIS [None]
